FAERS Safety Report 23916732 (Version 1)
Quarter: 2024Q2

REPORT INFORMATION
  Report Type: Report from Study
  Country: US (occurrence: US)
  Receive Date: 20240529
  Receipt Date: 20240529
  Transmission Date: 20240715
  Serious: Yes (Hospitalization, Other)
  Sender: FDA-Public Use
  Company Number: US-ABBVIE-5775703

PATIENT
  Sex: Female

DRUGS (1)
  1. HUMIRA [Suspect]
     Active Substance: ADALIMUMAB
     Indication: Psoriatic arthropathy
     Dosage: HUMIRA CITRATE FREE PEN?HUMIRA 40MG/0.4ML
     Route: 058
     Dates: start: 20181212

REACTIONS (2)
  - Diverticulitis [Recovered/Resolved]
  - Visual impairment [Not Recovered/Not Resolved]
